FAERS Safety Report 5332468-0 (Version None)
Quarter: 2007Q2

REPORT INFORMATION
  Report Type: 
  Country: None (occurrence: None)
  Receive Date: 20070521
  Receipt Date: 20070509
  Transmission Date: 20071010
  Serious: Yes (Other)
  Sender: FDA-Public Use
  Company Number: 6033119

PATIENT
  Age: 40 Year
  Sex: Female

DRUGS (3)
  1. BISOPRODOL FUMARATE [Suspect]
     Indication: CARDIAC FAILURE
     Dosage: 5 MG (2,5 MG,2 IN 1 D)
     Route: 048
  2. HEPARIN [Suspect]
     Indication: THROMBOSIS
  3. ASPEGIC (100MG, POWDER AND SOLVENT FOR ORAL SOLUTION) (ACETYLSALICYLIC [Suspect]
     Indication: THROMBOSIS
     Route: 048

REACTIONS (2)
  - DRUG EXPOSURE DURING PREGNANCY [None]
  - FOETAL GROWTH RETARDATION [None]
